FAERS Safety Report 25733031 (Version 1)
Quarter: 2025Q3

REPORT INFORMATION
  Report Type: Spontaneous
  Country: EU (occurrence: EU)
  Receive Date: 20250828
  Receipt Date: 20250828
  Transmission Date: 20251021
  Serious: Yes (Death)
  Sender: TEVA
  Company Number: None

PATIENT
  Age: 74 Year
  Sex: Female
  Weight: 69 kg

DRUGS (2)
  1. FLUOROURACIL [Suspect]
     Active Substance: FLUOROURACIL
     Indication: Squamous cell carcinoma
     Route: 042
     Dates: start: 20190802, end: 20190806
  2. MITOMYCIN [Suspect]
     Active Substance: MITOMYCIN
     Indication: Squamous cell carcinoma
     Route: 042
     Dates: start: 20190802, end: 20190802

REACTIONS (5)
  - Diarrhoea [Fatal]
  - Neutropenia [Fatal]
  - Renal failure [Fatal]
  - General physical health deterioration [Fatal]
  - Thrombocytopenia [Fatal]

NARRATIVE: CASE EVENT DATE: 20190805
